FAERS Safety Report 16098827 (Version 1)
Quarter: 2019Q1

REPORT INFORMATION
  Report Type: Report from Study
  Country: CA (occurrence: CA)
  Receive Date: 20190321
  Receipt Date: 20190321
  Transmission Date: 20190418
  Serious: Yes (Other)
  Sender: FDA-Public Use
  Company Number: CA-ROCHE-2284938

PATIENT
  Age: 31 Year
  Sex: Male

DRUGS (15)
  1. AZATHIOPRINE. [Concomitant]
     Active Substance: AZATHIOPRINE
  2. DAPSONE. [Concomitant]
     Active Substance: DAPSONE
  3. VITAMIN B12 [Concomitant]
     Active Substance: CYANOCOBALAMIN
  4. ZOPICLONE [Concomitant]
     Active Substance: ZOPICLONE
  5. MESTINON [Concomitant]
     Active Substance: PYRIDOSTIGMINE BROMIDE
  6. PREDNISONE. [Concomitant]
     Active Substance: PREDNISONE
  7. IBUPROFEN. [Concomitant]
     Active Substance: IBUPROFEN
  8. INDAPAMIDE. [Concomitant]
     Active Substance: INDAPAMIDE
  9. MELATONIN [Concomitant]
     Active Substance: MELATONIN
  10. ESCITALOPRAM [Concomitant]
     Active Substance: ESCITALOPRAM OXALATE
  11. ASA [Concomitant]
     Active Substance: ASPIRIN
  12. RITUXAN [Suspect]
     Active Substance: RITUXIMAB
     Indication: MYASTHENIA GRAVIS
     Route: 042
     Dates: start: 20190211
  13. TRAZODONE [Concomitant]
     Active Substance: TRAZODONE HYDROCHLORIDE
  14. PERINDOPRIL [Concomitant]
     Active Substance: PERINDOPRIL
  15. SOY LECITHIN [Concomitant]
     Active Substance: LECITHIN, SOYBEAN

REACTIONS (2)
  - Fall [Unknown]
  - Gait inability [Unknown]

NARRATIVE: CASE EVENT DATE: 20190312
